FAERS Safety Report 5984543-5 (Version None)
Quarter: 2008Q4

REPORT INFORMATION
  Report Type: 
  Country: None (occurrence: None)
  Receive Date: 20081202
  Receipt Date: 20081117
  Transmission Date: 20090506
  Serious: Yes (Other)
  Sender: FDA-Public Use
  Company Number: 2008S1016809

PATIENT
  Age: 19 Year
  Sex: Male

DRUGS (2)
  1. ISOTRETINOIN [Suspect]
     Indication: ACNE
     Dosage: .5 MG/KG;NULL_1_DAY ORAL; .3 MG/KG;NULL_1_DAY
     Route: 048
  2. PREDNISOLONE [Concomitant]

REACTIONS (3)
  - ABDOMINAL PAIN [None]
  - FOLLICULITIS [None]
  - PYODERMA GANGRENOSUM [None]
